FAERS Safety Report 8247767-2 (Version None)
Quarter: 2012Q1

REPORT INFORMATION
  Report Type: 
  Country: None (occurrence: None)
  Receive Date: 20120330
  Receipt Date: 20120319
  Transmission Date: 20120608
  Serious: Yes (Other)
  Sender: FDA-Public Use
  Company Number: US-US-EMD SERONO, INC.-7120129

PATIENT
  Sex: Female

DRUGS (5)
  1. LUPRON [Suspect]
  2. LUPRON [Suspect]
     Indication: IN VITRO FERTILISATION
  3. ESTRADIOL [Concomitant]
     Indication: IN VITRO FERTILISATION
     Route: 048
  4. MENOTROPINS [Suspect]
     Indication: IN VITRO FERTILISATION
  5. CHORIOGONADOTROPIN ALFA [Suspect]
     Indication: IN VITRO FERTILISATION

REACTIONS (2)
  - TWIN PREGNANCY [None]
  - ABORTION SPONTANEOUS [None]
